FAERS Safety Report 23914797 (Version 2)
Quarter: 2024Q2

REPORT INFORMATION
  Report Type: Spontaneous
  Country: US (occurrence: US)
  Receive Date: 20240529
  Receipt Date: 20240530
  Transmission Date: 20240716
  Serious: Yes (Hospitalization)
  Sender: FDA-Public Use
  Company Number: US-ABBVIE-5776715

PATIENT
  Sex: Female
  Weight: 54.431 kg

DRUGS (3)
  1. SYNTHROID [Suspect]
     Active Substance: LEVOTHYROXINE SODIUM
     Indication: Hypothyroidism
     Dosage: FORM STRENGTH: 75 MICROGRAM
     Route: 048
     Dates: start: 1979
  2. METOPROLOL [Concomitant]
     Active Substance: METOPROLOL
     Indication: Blood pressure measurement
  3. ISOSORBIDE [Concomitant]
     Active Substance: ISOSORBIDE
     Indication: Cardiac disorder

REACTIONS (5)
  - Arthritis [Recovering/Resolving]
  - Fatigue [Not Recovered/Not Resolved]
  - Limb injury [Recovered/Resolved]
  - Skin laceration [Recovered/Resolved]
  - Accident [Unknown]

NARRATIVE: CASE EVENT DATE: 19890101
